FAERS Safety Report 4897172-1 (Version None)
Quarter: 2006Q1

REPORT INFORMATION
  Report Type: 
  Country: None (occurrence: None)
  Receive Date: 20060127
  Receipt Date: 20060125
  Transmission Date: 20060701
  Serious: Yes (Life-Threatening)
  Sender: FDA-Public Use
  Company Number: 2006S1000020

PATIENT
  Age: 5 Day
  Sex: Male

DRUGS (5)
  1. INOMAX [Suspect]
     Indication: LUNG DISORDER
     Dosage: 5 PPM; INH_GAS; INH; CONT
     Route: 055
     Dates: start: 20060119
  2. INOMAX [Suspect]
     Indication: PROPHYLAXIS
     Dosage: 5 PPM; INH_GAS; INH; CONT
     Route: 055
     Dates: start: 20060119
  3. GENTAMICIN [Concomitant]
  4. CLAFORAN [Concomitant]
  5. METRONIDAZOLE [Concomitant]

REACTIONS (3)
  - GASTROINTESTINAL DISORDER [None]
  - ILEAL PERFORATION [None]
  - INFECTION [None]
